FAERS Safety Report 9786807 (Version 2)
Quarter: 2013Q4

REPORT INFORMATION
  Report Type: Spontaneous
  Country: TR (occurrence: TR)
  Receive Date: 20131227
  Receipt Date: 20131227
  Transmission Date: 20140711
  Serious: Yes (Hospitalization)
  Sender: FDA-Public Use
  Company Number: TR-ABBVIE-13P-178-1083449-00

PATIENT
  Age: 52 Year
  Sex: Female
  Weight: 60 kg

DRUGS (3)
  1. HUMIRA [Suspect]
     Indication: PITYRIASIS RUBRA PILARIS
     Route: 058
     Dates: start: 201303, end: 201304
  2. INFLIXIMAB [Suspect]
     Indication: PITYRIASIS RUBRA PILARIS
  3. ETANERCEPT [Concomitant]
     Indication: PITYRIASIS RUBRA PILARIS

REACTIONS (4)
  - Generalised oedema [Recovered/Resolved]
  - Dermatitis exfoliative [Recovered/Resolved]
  - Eosinophilia [Unknown]
  - Adverse drug reaction [Unknown]
